FAERS Safety Report 4325579-X (Version None)
Quarter: 2004Q1

REPORT INFORMATION
  Report Type: 
  Country: None (occurrence: None)
  Receive Date: 20040323
  Receipt Date: 20040105
  Transmission Date: 20041129
  Serious: No
  Sender: FDA-Public Use
  Company Number: USA040155898

PATIENT
  Age: 50 Year
  Sex: Male
  Weight: 127 kg

DRUGS (5)
  1. CIALIS [Suspect]
     Dosage: 20 MG/AS NEEDED
     Dates: start: 20031230
  2. AVANDIA [Concomitant]
  3. LOTENSIN [Concomitant]
  4. DIOVAN HCT [Concomitant]
  5. GLUCOTROL [Concomitant]

REACTIONS (4)
  - BACK PAIN [None]
  - HEADACHE [None]
  - INSOMNIA [None]
  - MYALGIA [None]
